FAERS Safety Report 9785335 (Version 1)
Quarter: 2013Q4

REPORT INFORMATION
  Report Type: Spontaneous
  Country: IT (occurrence: None)
  Receive Date: 20131223
  Receipt Date: 20131223
  Transmission Date: 20140711
  Serious: Yes (Death)
  Sender: FDA-Public Use
  Company Number: 2013IT00838

PATIENT
  Sex: Female

DRUGS (6)
  1. CARBOPLATIN (CARBOPLATIN) [Suspect]
     Indication: PRIMITIVE NEUROECTODERMAL TUMOUR
  2. UNSPECIFIED INGREDIENTS [Suspect]
     Indication: PRIMITIVE NEUROECTODERMAL TUMOUR
  3. THIOTEPA [Suspect]
     Indication: PRIMITIVE NEUROECTODERMAL TUMOUR
     Dosage: 300 MG/DAY, FOR 3 DAYS, SEPARATED BY AN INTERVAL OF 5-6 WEEKS, SINGLE COURSE
  4. ETOPOSIDE (ETOPOSIDE) [Suspect]
     Indication: PRIMITIVE NEUROECTODERMAL TUMOUR
     Dosage: 2.4 G/M2, 1 WEEK
  5. CYCLOPHOSPHAMIDE (CYCLOPHOSPHAMIDE) [Suspect]
     Indication: PRIMITIVE NEUROECTODERMAL TUMOUR
     Dosage: 4 G/M2, 4 WEEKS
  6. METHOTREXATE (METHOTREXATE) [Suspect]
     Indication: PRIMITIVE NEUROECTODERMAL TUMOUR
     Dosage: 8 G/M2

REACTIONS (2)
  - Multi-organ failure [None]
  - Bone marrow failure [None]
